FAERS Safety Report 23984857 (Version 9)
Quarter: 2025Q4

REPORT INFORMATION
  Report Type: Report from Study
  Country: KR (occurrence: KR)
  Receive Date: 20240618
  Receipt Date: 20251217
  Transmission Date: 20260119
  Serious: Yes (Hospitalization)
  Sender: ABBVIE
  Company Number: KR-ABBVIE-5800598

PATIENT
  Age: 80 Year
  Sex: Female
  Weight: 62 kg

DRUGS (114)
  1. VENCLEXTA [Suspect]
     Active Substance: VENETOCLAX
     Indication: Acute myeloid leukaemia
     Dosage: FORM STRENGTH- 50MG
     Route: 048
     Dates: start: 20240412, end: 20240412
  2. VENCLEXTA [Suspect]
     Active Substance: VENETOCLAX
     Indication: Acute myeloid leukaemia
     Dosage: FORM STRENGTH- 150MG
     Route: 048
     Dates: start: 20240501, end: 20240606
  3. VENCLEXTA [Suspect]
     Active Substance: VENETOCLAX
     Indication: Acute myeloid leukaemia
     Dosage: FORM STRENGTH-50MG
     Route: 048
     Dates: start: 20240617, end: 20240714
  4. VENCLEXTA [Suspect]
     Active Substance: VENETOCLAX
     Indication: Acute myeloid leukaemia
     Dosage: FORM STRENGTH-100 MG
     Route: 048
     Dates: start: 20240715, end: 20240812
  5. VENCLEXTA [Suspect]
     Active Substance: VENETOCLAX
     Indication: Acute myeloid leukaemia
     Dosage: FORM STRENGTH-100MG
     Route: 048
     Dates: start: 20240909, end: 20240922
  6. VENCLEXTA [Suspect]
     Active Substance: VENETOCLAX
     Indication: Acute myeloid leukaemia
     Dosage: FORM STRENGTH-200MG
     Route: 048
     Dates: start: 20240828, end: 20240908
  7. VENCLEXTA [Suspect]
     Active Substance: VENETOCLAX
     Indication: Acute myeloid leukaemia
     Dosage: FORM STRENGTH-50MG
     Route: 048
     Dates: start: 20240412, end: 20240412
  8. MIRTAZAPINE [Suspect]
     Active Substance: MIRTAZAPINE
     Indication: Insomnia
     Dosage: FORM STRENGTH- 0.5MG
     Route: 048
     Dates: start: 20240607, end: 20240607
  9. DACOGEN [Concomitant]
     Active Substance: DECITABINE
     Indication: Acute myeloid leukaemia
     Route: 042
     Dates: start: 20240412, end: 20240416
  10. DACOGEN [Concomitant]
     Active Substance: DECITABINE
     Indication: Acute myeloid leukaemia
     Route: 042
     Dates: start: 20240510, end: 20240514
  11. DACOGEN [Concomitant]
     Active Substance: DECITABINE
     Indication: Acute myeloid leukaemia
     Route: 042
     Dates: start: 20240617, end: 20240621
  12. DACOGEN [Concomitant]
     Active Substance: DECITABINE
     Indication: Acute myeloid leukaemia
     Route: 042
     Dates: start: 20240715, end: 20240719
  13. DACOGEN [Concomitant]
     Active Substance: DECITABINE
     Indication: Acute myeloid leukaemia
     Route: 042
     Dates: start: 20240828, end: 20240901
  14. Esomezol [Concomitant]
     Indication: Abdominal pain upper
     Dosage: 20MG
     Route: 048
     Dates: start: 20240417, end: 20240520
  15. Esomezol [Concomitant]
     Indication: Abdominal pain upper
     Dosage: 20MG
     Route: 048
     Dates: start: 20240614, end: 20240701
  16. Esomezol [Concomitant]
     Indication: Abdominal pain upper
     Dosage: 20MG
     Route: 048
     Dates: start: 20240913
  17. VITAMINS [Concomitant]
     Active Substance: VITAMINS
     Indication: Vitamin supplementation
     Dosage: UNIT DOSE: 1 VIAL
     Route: 042
     Dates: start: 20240413, end: 20240414
  18. SPORANOX [Concomitant]
     Active Substance: ITRACONAZOLE
     Indication: Antifungal prophylaxis
     Dosage: FORM STRENGTH-100MG
     Route: 048
     Dates: start: 20241008, end: 20241021
  19. NOXAFIL [Concomitant]
     Active Substance: POSACONAZOLE
     Indication: Antifungal prophylaxis
     Dosage: FORM STRENGTH-100MG
     Route: 048
     Dates: start: 20240617, end: 20240617
  20. NOXAFIL [Concomitant]
     Active Substance: POSACONAZOLE
     Indication: Antifungal prophylaxis
     Dosage: FORM STRENGTH-100MG
     Route: 048
     Dates: start: 20240618
  21. NOXAFIL [Concomitant]
     Active Substance: POSACONAZOLE
     Indication: Antifungal prophylaxis
     Dosage: FORM STRENGTH-100MG
     Route: 048
     Dates: start: 20240413, end: 20240413
  22. NOXAFIL [Concomitant]
     Active Substance: POSACONAZOLE
     Indication: Antifungal prophylaxis
     Dosage: FORM STRENGTH-100MG
     Route: 048
     Dates: start: 20240414, end: 20240430
  23. TWYNSTA [Concomitant]
     Active Substance: AMLODIPINE BESYLATE\TELMISARTAN
     Indication: Hypertension
     Route: 048
     Dates: start: 20241003, end: 20241021
  24. Dulackhan easy [Concomitant]
     Indication: Constipation
     Route: 048
     Dates: start: 20240607, end: 20240611
  25. Dulackhan easy [Concomitant]
     Indication: Constipation
     Route: 048
     Dates: start: 20240617, end: 20240620
  26. Dulackhan easy [Concomitant]
     Indication: Constipation
     Dosage: TIME INTERVAL: 0.33333333 DAYS
     Route: 048
     Dates: start: 20240508, end: 20240620
  27. Dulackhan easy [Concomitant]
     Indication: Constipation
     Dosage: TIME INTERVAL: 0.33333333 DAYS
     Route: 048
     Dates: start: 20240505, end: 20240607
  28. METOCLOPRAMIDE HYDROCHLORIDE [Concomitant]
     Active Substance: METOCLOPRAMIDE HYDROCHLORIDE
     Indication: Nausea
     Dosage: TIME INTERVAL: AS NECESSARY: FORM STRENGTH- 2ML
     Route: 042
     Dates: start: 20240418, end: 20240428
  29. METOCLOPRAMIDE HYDROCHLORIDE [Concomitant]
     Active Substance: METOCLOPRAMIDE HYDROCHLORIDE
     Indication: Nausea
     Dosage: FORM STRENGTH-2ML
     Route: 042
     Dates: start: 20241002, end: 20241002
  30. METOCLOPRAMIDE HYDROCHLORIDE [Concomitant]
     Active Substance: METOCLOPRAMIDE HYDROCHLORIDE
     Indication: Nausea
     Dosage: TIME INTERVAL: 0.33333333 DAYS: FORM STRENGTH- 2ML?AS REQUIRED
     Route: 042
     Dates: start: 20240925, end: 20240929
  31. ANAPROX [Concomitant]
     Active Substance: NAPROXEN SODIUM
     Indication: Abdominal pain
     Route: 048
     Dates: start: 20240417, end: 20240423
  32. ANAPROX [Concomitant]
     Active Substance: NAPROXEN SODIUM
     Indication: Abdominal pain
     Route: 048
     Dates: start: 20240614, end: 20240619
  33. Kukje ceftriaxone na [Concomitant]
     Indication: Pyrexia
     Route: 042
     Dates: start: 20240410, end: 20240417
  34. MUCOBARRIER [Concomitant]
     Indication: Prophylaxis
     Dosage: GARGLE MOUTH WASH?FREQUENCY: AS NECESSARY
     Dates: start: 20240607
  35. MEGACE F [Concomitant]
     Indication: Prophylaxis
     Dosage: SUSPENSION
     Route: 048
     Dates: start: 20240430, end: 20240510
  36. MEGACE F [Concomitant]
     Indication: Prophylaxis
     Dosage: SUSPENSION
     Route: 048
     Dates: start: 20240614, end: 20240621
  37. VESICARE [Concomitant]
     Active Substance: SOLIFENACIN SUCCINATE
     Indication: Urinary retention
     Route: 048
     Dates: start: 20240521, end: 20240612
  38. VESICARE [Concomitant]
     Active Substance: SOLIFENACIN SUCCINATE
     Indication: Urinary retention
     Route: 048
     Dates: start: 20240613
  39. ANEPOL [Concomitant]
     Indication: Premedication
     Dosage: UNIT DOSE - 20 MG
     Route: 042
     Dates: start: 20240412, end: 20240412
  40. MAGNESIUM HYDROXIDE [Concomitant]
     Active Substance: MAGNESIUM HYDROXIDE
     Indication: Constipation
     Dosage: FORM STRENGTH- 500 MG
     Route: 048
     Dates: start: 20240410, end: 20240413
  41. MAGNESIUM HYDROXIDE [Concomitant]
     Active Substance: MAGNESIUM HYDROXIDE
     Indication: Constipation
     Dosage: FORM STRENGTH- 500MG
     Route: 048
     Dates: start: 20240614, end: 20240719
  42. MAGNESIUM HYDROXIDE [Concomitant]
     Active Substance: MAGNESIUM HYDROXIDE
     Indication: Constipation
     Dosage: FORM STRENGTH- 500MG
     Route: 048
     Dates: start: 20240617, end: 20240620
  43. MAGNESIUM HYDROXIDE [Concomitant]
     Active Substance: MAGNESIUM HYDROXIDE
     Indication: Constipation
     Dosage: FORM STRENGTH- 500MG
     Route: 048
     Dates: start: 20240819, end: 20241006
  44. DICHLOZID [Concomitant]
     Indication: Hypertension
     Route: 048
     Dates: start: 20240423, end: 20240426
  45. GASTIIN CR [Concomitant]
     Indication: Nausea
     Route: 048
     Dates: start: 20241004, end: 20241021
  46. PROPRANOLOL HYDROCHLORIDE [Concomitant]
     Active Substance: PROPRANOLOL HYDROCHLORIDE
     Indication: Tremor
     Route: 048
     Dates: start: 20240511, end: 20240514
  47. PROPRANOLOL HYDROCHLORIDE [Concomitant]
     Active Substance: PROPRANOLOL HYDROCHLORIDE
     Indication: Tremor
     Route: 048
     Dates: start: 20240524, end: 20240621
  48. PROPRANOLOL HYDROCHLORIDE [Concomitant]
     Active Substance: PROPRANOLOL HYDROCHLORIDE
     Indication: Tremor
     Route: 048
     Dates: start: 20240508, end: 20240510
  49. PROPRANOLOL HYDROCHLORIDE [Concomitant]
     Active Substance: PROPRANOLOL HYDROCHLORIDE
     Indication: Tremor
     Dosage: START DATE TEXT: 1
     Route: 048
     Dates: start: 20240701
  50. Diclomed [Concomitant]
     Indication: Prophylaxis
     Dosage: SOLUTION  0.074%?FREQUENCY TEXT: PRN?GARGLE
     Dates: start: 20240607
  51. REBAMIPIDE [Concomitant]
     Active Substance: REBAMIPIDE
     Indication: Gastritis prophylaxis
     Dosage: TIME INTERVAL: 0.33333333 DAYS: FORM STRENGTH- 100MG
     Route: 048
     Dates: start: 20241004, end: 20241021
  52. ATACAND [Concomitant]
     Active Substance: CANDESARTAN CILEXETIL
     Indication: Hypertension
     Route: 048
     Dates: start: 20240427
  53. LEVOFLOXACIN [Concomitant]
     Active Substance: LEVOFLOXACIN
     Indication: Infection prophylaxis
     Dosage: 500 MG
     Route: 048
     Dates: start: 20240607, end: 20240610
  54. LEVOFLOXACIN [Concomitant]
     Active Substance: LEVOFLOXACIN
     Indication: Infection prophylaxis
     Route: 048
     Dates: start: 20240621
  55. NEXIUM [Concomitant]
     Active Substance: ESOMEPRAZOLE MAGNESIUM
     Indication: Nausea
     Dosage: FORM STRENGTH- 40MG
     Route: 042
     Dates: start: 20240930, end: 20241004
  56. DIFLUCAN [Concomitant]
     Active Substance: FLUCONAZOLE
     Indication: Antifungal prophylaxis
     Dosage: FORM STRENGTH- 50 MG
     Route: 048
     Dates: start: 20240501
  57. BANAN [Concomitant]
     Active Substance: CEFPODOXIME PROXETIL
     Indication: Infection prophylaxis
     Route: 048
     Dates: start: 20240621
  58. X PAIN SEMI [Concomitant]
     Indication: Arthralgia
     Route: 048
     Dates: start: 20240828, end: 20240908
  59. PENIRAMIN [Concomitant]
     Indication: Premedication
     Dosage: FORM STRENGTH- 4MG
     Route: 042
     Dates: start: 20240611, end: 20240611
  60. PENIRAMIN [Concomitant]
     Indication: Premedication
     Dosage: FORM STRENGTH- 4MG
     Route: 042
     Dates: start: 20240531, end: 20240531
  61. PENIRAMIN [Concomitant]
     Indication: Premedication
     Dosage: FORM STRENGTH- 4MG?FREQUENCY TEXT: AS NECESSARY
     Route: 042
     Dates: start: 20240410
  62. PENIRAMIN [Concomitant]
     Indication: Premedication
     Dosage: TIME INTERVAL: AS NECESSARY: FORM STRENGTH- 4MG
     Route: 042
  63. PENIRAMIN [Concomitant]
     Indication: Premedication
     Dosage: FORM STRENGTH- 2MG
     Route: 048
     Dates: start: 20240419, end: 20240422
  64. GELMA [Concomitant]
     Indication: Abdominal pain upper
     Dosage: TIME INTERVAL: 0.33333333 DAYS: SUSPENSION
     Route: 048
     Dates: start: 20240924, end: 20240926
  65. Levoplus [Concomitant]
     Indication: Infection prophylaxis
     Dosage: 750MG
     Route: 048
     Dates: start: 20240417
  66. NEUPOGEN [Concomitant]
     Active Substance: FILGRASTIM
     Indication: Neutrophil count decreased
     Dosage: 150 G/0.6ML?SOLUTION FOR INJECTION IN PRE-FILLED SYRINGE
     Route: 058
     Dates: start: 20240607, end: 20240607
  67. DULCOLAX-S [Concomitant]
     Indication: Constipation
     Route: 048
     Dates: start: 20240731
  68. Furix [Concomitant]
     Indication: Cardiac failure
     Route: 048
     Dates: start: 20240427, end: 20240610
  69. Furix [Concomitant]
     Indication: Cardiac failure
     Route: 048
     Dates: start: 20240715
  70. Furix [Concomitant]
     Indication: Cardiac failure
     Dosage: 40 MG
     Route: 048
  71. TRAZODONE HYDROCHLORIDE [Concomitant]
     Active Substance: TRAZODONE HYDROCHLORIDE
     Indication: Insomnia
     Dosage: FORM STRENGTH- 25MG
     Route: 048
     Dates: start: 20240421, end: 20240502
  72. TRAZODONE HYDROCHLORIDE [Concomitant]
     Active Substance: TRAZODONE HYDROCHLORIDE
     Indication: Insomnia
     Dosage: FORM STRENGTH-50MG
     Route: 048
     Dates: start: 20240503, end: 20240520
  73. TRAZODONE HYDROCHLORIDE [Concomitant]
     Active Substance: TRAZODONE HYDROCHLORIDE
     Indication: Insomnia
     Route: 048
     Dates: start: 20240531
  74. PANTOPRAZOLE SODIUM [Concomitant]
     Active Substance: PANTOPRAZOLE SODIUM
     Indication: Abdominal pain upper
     Dosage: FORM STRENGTH- 20MG
     Route: 048
     Dates: start: 20240923, end: 20240929
  75. PANTOPRAZOLE SODIUM [Concomitant]
     Active Substance: PANTOPRAZOLE SODIUM
     Indication: Abdominal pain upper
     Dosage: FORM STRENGTH- 40MG
     Route: 042
     Dates: start: 20240913, end: 20240913
  76. JARDIANCE [Concomitant]
     Active Substance: EMPAGLIFLOZIN
     Indication: Cardiac failure
     Route: 048
     Dates: start: 20240426, end: 20240621
  77. JARDIANCE [Concomitant]
     Active Substance: EMPAGLIFLOZIN
     Indication: Cardiac failure
     Route: 048
     Dates: start: 20240715
  78. MEPERIDINE HYDROCHLORIDE [Concomitant]
     Active Substance: MEPERIDINE HYDROCHLORIDE
     Indication: Premedication
     Dosage: JEIL PETHIDINE HCL INJ 25MG/0.5ML
     Route: 030
     Dates: start: 20241002, end: 20241002
  79. MIDACUM [Concomitant]
     Indication: Premedication
     Dosage: FORM STRENGTH- 5 MG
     Route: 042
     Dates: start: 20240412, end: 20240412
  80. Tacenol 8 hours er [Concomitant]
     Indication: Abdominal pain upper
     Dosage: TIME INTERVAL: 0.33333333 DAYS
     Route: 048
     Dates: start: 20240909
  81. GASTER [Concomitant]
     Active Substance: FAMOTIDINE
     Indication: Abdominal pain upper
     Route: 042
     Dates: start: 20240417, end: 20240417
  82. LASIX [Concomitant]
     Active Substance: FUROSEMIDE
     Indication: Prophylaxis
     Route: 042
     Dates: start: 20240617, end: 20240617
  83. LASIX [Concomitant]
     Active Substance: FUROSEMIDE
     Indication: Prophylaxis
     Route: 042
     Dates: start: 20240831, end: 20240831
  84. LASIX [Concomitant]
     Active Substance: FUROSEMIDE
     Indication: Prophylaxis
     Dosage: TIME INTERVAL: AS NECESSARY: UNIT DOSE- 10-20 MG
     Route: 042
     Dates: start: 20241003, end: 20241011
  85. SOLONDO [Concomitant]
     Indication: Thrombocytopenia
     Route: 048
     Dates: start: 20240519
  86. TRAMADOL HYDROCHLORIDE [Concomitant]
     Active Substance: TRAMADOL HYDROCHLORIDE
     Indication: Headache
     Dosage: DOSAGE: 50 MG/ML
     Route: 042
     Dates: start: 20240517, end: 20240519
  87. TRAMADOL HYDROCHLORIDE [Concomitant]
     Active Substance: TRAMADOL HYDROCHLORIDE
     Indication: Headache
     Dosage: DOSAGE: 50 MG/ML
     Route: 042
     Dates: start: 20240512, end: 20240512
  88. TRAMADOL HYDROCHLORIDE [Concomitant]
     Active Substance: TRAMADOL HYDROCHLORIDE
     Indication: Headache
     Dosage: DOSAGE: 50 MG/ML
     Route: 042
     Dates: start: 20240410, end: 20240416
  89. TRAMADOL HYDROCHLORIDE [Concomitant]
     Active Substance: TRAMADOL HYDROCHLORIDE
     Indication: Headache
     Dosage: DOSAGE: 50 MG/ML
     Route: 042
     Dates: start: 20240516, end: 20240516
  90. TRAMADOL HYDROCHLORIDE [Concomitant]
     Active Substance: TRAMADOL HYDROCHLORIDE
     Indication: Headache
     Dosage: DOSAGE: 50 MG/ML START DATE TEXT: 1
     Route: 042
     Dates: start: 20240924, end: 20240927
  91. TRAMADOL HYDROCHLORIDE [Concomitant]
     Active Substance: TRAMADOL HYDROCHLORIDE
     Indication: Headache
     Dosage: TIME INTERVAL: AS NECESSARY: DOSAGE: 50 MG/ML START DATE TEXT: 1
     Route: 042
  92. HEPACON [Concomitant]
     Indication: Prophylaxis
     Route: 048
     Dates: start: 20240415, end: 20240422
  93. NORVASC [Concomitant]
     Active Substance: AMLODIPINE BESYLATE
     Indication: Hypertension
     Dosage: FORM STRENGTH- 5MG
     Route: 048
     Dates: start: 20240423, end: 20240520
  94. NORVASC [Concomitant]
     Active Substance: AMLODIPINE BESYLATE
     Indication: Hypertension
     Dosage: FORM STRENGTH- 5MG
     Route: 048
     Dates: start: 20241002, end: 20241002
  95. NORVASC [Concomitant]
     Active Substance: AMLODIPINE BESYLATE
     Indication: Hypertension
     Dosage: FORM STRENGTH- 5MG
     Route: 048
     Dates: start: 20241001, end: 20241001
  96. Dulackhan [Concomitant]
     Indication: Constipation
     Dosage: TIME INTERVAL: 0.33333333 DAYS
     Route: 048
     Dates: start: 20240505, end: 20240507
  97. Dulackhan [Concomitant]
     Indication: Constipation
     Dosage: TIME INTERVAL: 0.33333333 DAYS
     Route: 048
     Dates: start: 20240508, end: 20240520
  98. Dulackhan [Concomitant]
     Indication: Constipation
     Route: 048
     Dates: start: 20240717, end: 20240719
  99. Dulackhan [Concomitant]
     Indication: Constipation
     Route: 048
     Dates: start: 20240901, end: 20240901
  100. Dulackhan [Concomitant]
     Indication: Constipation
     Route: 048
     Dates: start: 20240828, end: 20240828
  101. Uropa sr [Concomitant]
     Indication: Dysuria
     Dosage: FORM STRENGTH- 0.4MG
     Route: 048
     Dates: start: 20240620
  102. PHAZYME [Concomitant]
     Active Substance: DIMETHICONE 410
     Indication: Gastrointestinal disorder prophylaxis
     Dosage: TIME INTERVAL: 0.33333333 DAYS
     Route: 048
     Dates: start: 20241004, end: 20241021
  103. Mypol [Concomitant]
     Indication: Abdominal pain upper
     Dosage: TIME INTERVAL: 0.33333333 DAYS
     Route: 048
     Dates: start: 20241002, end: 20241002
  104. MIRAPEX [Concomitant]
     Active Substance: PRAMIPEXOLE DIHYDROCHLORIDE
     Indication: Restless legs syndrome
     Dosage: FORM STRENGTH- 0.125MG
     Route: 048
     Dates: start: 20240422, end: 20240621
  105. MIRAPEX [Concomitant]
     Active Substance: PRAMIPEXOLE DIHYDROCHLORIDE
     Indication: Restless legs syndrome
     Dosage: FORM STRENGTH- 0.125MG
     Route: 048
     Dates: start: 20240701, end: 20241021
  106. NOLTEC [Concomitant]
     Indication: Gastritis prophylaxis
     Route: 048
     Dates: start: 20241004, end: 20241021
  107. AMBISOME [Concomitant]
     Active Substance: AMPHOTERICIN B
     Indication: Antifungal prophylaxis
     Route: 042
     Dates: start: 20240925, end: 20241001
  108. OTRON [Concomitant]
     Indication: Nausea
     Dosage: FORM STRENGTH- 4 ML
     Route: 042
     Dates: start: 20241002, end: 20241002
  109. DIETARY SUPPLEMENT\HERBALS\MILK THISTLE [Concomitant]
     Active Substance: MILK THISTLE
     Indication: Liver function test increased
     Dosage: TIME INTERVAL: 0.33333333 DAYS
     Route: 048
     Dates: start: 20240927, end: 20240929
  110. URSODIOL [Concomitant]
     Active Substance: URSODIOL
     Indication: Liver function test increased
     Dosage: TIME INTERVAL: 0.33333333 DAYS
     Route: 048
     Dates: start: 20240927, end: 20241021
  111. RAMOSETRON HYDROCHLORIDE [Concomitant]
     Active Substance: RAMOSETRON HYDROCHLORIDE
     Indication: Nausea
     Dosage: FORM STRENGTH- 0.3MG
     Route: 042
     Dates: start: 20241002, end: 20241002
  112. Dong a perdipine [Concomitant]
     Indication: Hypertension
     Dosage: FORM STRENGTH-10ML
     Route: 042
     Dates: start: 20241001, end: 20241001
  113. SALON [Concomitant]
     Indication: Premedication
     Dosage: UNIT DOSE : 0.5 VIAL
     Route: 042
     Dates: start: 20240913, end: 20240913
  114. COUGH SYRUP [Concomitant]
     Active Substance: DEXTROMETHORPHAN HYDROBROMIDE\GUAIFENESIN
     Indication: Prophylaxis
     Route: 048
     Dates: start: 20240715, end: 20240717

REACTIONS (3)
  - Syncope [Recovered/Resolved]
  - Pneumonia [Recovered/Resolved]
  - Pneumonia [Recovered/Resolved]

NARRATIVE: CASE EVENT DATE: 20240608
